FAERS Safety Report 15999772 (Version 5)
Quarter: 2022Q4

REPORT INFORMATION
  Report Type: Spontaneous
  Country: US (occurrence: US)
  Receive Date: 20190225
  Receipt Date: 20221024
  Transmission Date: 20230113
  Serious: No
  Sender: FDA-Public Use
  Company Number: US-PFIZER INC-2019081408

PATIENT
  Age: 79 Year
  Sex: Female

DRUGS (1)
  1. XELJANZ XR [Suspect]
     Active Substance: TOFACITINIB CITRATE
     Dosage: 11 MG, 1X/DAY (1TABLET 11 MG BY MOUTH ONCE DAILY)
     Route: 048

REACTIONS (3)
  - Herpes zoster [Unknown]
  - Nerve injury [Unknown]
  - Musculoskeletal stiffness [Unknown]
